FAERS Safety Report 5486882-3 (Version None)
Quarter: 2007Q4

REPORT INFORMATION
  Report Type: 
  Country: None (occurrence: None)
  Receive Date: 20071012
  Receipt Date: 20071012
  Transmission Date: 20080405
  Serious: Yes (Hospitalization)
  Sender: FDA-Public Use
  Company Number: None

PATIENT
  Age: 77 Year
  Sex: Male
  Weight: 94.5 kg

DRUGS (12)
  1. LOVENOX [Suspect]
     Indication: THROMBOSIS PROPHYLAXIS
     Dosage: 40MG DAILY SQ
     Route: 058
  2. AMLODIPINE [Suspect]
     Indication: HYPERTENSION
     Dosage: 10MG DAILY PO
     Route: 048
  3. ASCORBIC ACID [Concomitant]
  4. DEXAMETHASONE 0.5MG TAB [Concomitant]
  5. DOCUSATE [Concomitant]
  6. FOLIC ACID [Concomitant]
  7. REGULAR INSULIN [Concomitant]
  8. LISINOPRIL [Concomitant]
  9. THERAGRAN M [Concomitant]
  10. VITAMIN A [Concomitant]
  11. SENNA [Concomitant]
  12. ZINC SULFATE [Concomitant]

REACTIONS (2)
  - HEPARIN-INDUCED THROMBOCYTOPENIA [None]
  - PANCYTOPENIA [None]
